FAERS Safety Report 6206925-9 (Version None)
Quarter: 2009Q2

REPORT INFORMATION
  Report Type: 
  Country: None (occurrence: None)
  Receive Date: 20090528
  Receipt Date: 20090520
  Transmission Date: 20091009
  Serious: Yes (Hospitalization)
  Sender: FDA-Public Use
  Company Number: A0785307A

PATIENT
  Sex: Female

DRUGS (2)
  1. AVANDIA [Suspect]
     Route: 065
  2. HIGH BLOOD PRESSURE PILL [Concomitant]

REACTIONS (5)
  - CARDIAC FAILURE CONGESTIVE [None]
  - NEUROPATHY PERIPHERAL [None]
  - RENAL FAILURE [None]
  - UNEVALUABLE EVENT [None]
  - WEIGHT INCREASED [None]
